FAERS Safety Report 4821151-3 (Version None)
Quarter: 2005Q4

REPORT INFORMATION
  Report Type: 
  Country: None (occurrence: None)
  Receive Date: 20051103
  Receipt Date: 20051025
  Transmission Date: 20060501
  Serious: Yes (Other)
  Sender: FDA-Public Use
  Company Number: 2005146918

PATIENT
  Sex: Female

DRUGS (8)
  1. CELEBREX [Suspect]
     Indication: PAIN
     Dosage: 200 MG (200 MG, 1 IN 1 D), ORAL
     Route: 048
  2. PROMETRIUM [Concomitant]
  3. ESTRADIOL [Concomitant]
  4. OSTEO BI-FLEX(CHONDROITIN SULFATE, GLUCOSAMINE HYDROCHLORIDE) [Concomitant]
  5. ASPIRIN [Concomitant]
  6. CENTRUM SILVER (ASCORBIC ACID, CALCIUM, MINERALS NOS, RETINOL, TOCOPHE [Concomitant]
  7. DIURETICS (DIURETICS) [Concomitant]
  8. DRIXORAL [Concomitant]

REACTIONS (4)
  - DYSPEPSIA [None]
  - NAUSEA [None]
  - SKIN CANCER [None]
  - TREATMENT NONCOMPLIANCE [None]
